FAERS Safety Report 20721673 (Version 2)
Quarter: 2023Q2

REPORT INFORMATION
  Report Type: Spontaneous
  Country: US (occurrence: US)
  Receive Date: 20220418
  Receipt Date: 20230419
  Transmission Date: 20230722
  Serious: No
  Sender: FDA-Public Use
  Company Number: US-EVOKE PHARMA, INC.-2022EVO000037

PATIENT

DRUGS (3)
  1. GIMOTI [Suspect]
     Active Substance: METOCLOPRAMIDE HYDROCHLORIDE
     Indication: Impaired gastric emptying
     Dosage: 15 MG, 1 SPRAY INTO 1 NOSTRIL TWICE A DAY, 1 SPRAY HALF AN HOUR BEFORE THE BREAKFAST AND 1 SPRAY IN
     Route: 045
     Dates: start: 20220218, end: 20220226
  2. PANTOPRAZOLE [Concomitant]
     Active Substance: PANTOPRAZOLE
     Indication: Product used for unknown indication
     Dosage: UNK
  3. CARAFATE [Concomitant]
     Active Substance: SUCRALFATE
     Indication: Product used for unknown indication
     Dosage: UNK, QID

REACTIONS (7)
  - Discomfort [Recovered/Resolved]
  - Tongue movement disturbance [Recovered/Resolved]
  - Disturbance in attention [Recovered/Resolved]
  - Dysgeusia [Recovered/Resolved]
  - Fatigue [Recovered/Resolved]
  - Somnolence [Recovered/Resolved]
  - Headache [Recovered/Resolved]

NARRATIVE: CASE EVENT DATE: 20220201
